FAERS Safety Report 6882940-7 (Version None)
Quarter: 2010Q3

REPORT INFORMATION
  Report Type: 
  Country: None (occurrence: None)
  Receive Date: 20100727
  Receipt Date: 20100625
  Transmission Date: 20110219
  Serious: No
  Sender: FDA-Public Use
  Company Number: 2010JP001598

PATIENT
  Age: 78 Year
  Sex: Male

DRUGS (2)
  1. VESICARE [Suspect]
     Indication: HYPERTONIC BLADDER
     Dosage: 5 MG, UID/QD, ORAL
     Route: 048
     Dates: start: 20091228, end: 20100216
  2. URIEF (SILODOSIN) TABLET [Suspect]
     Indication: BENIGN PROSTATIC HYPERPLASIA
     Dosage: 4 MG, UID/QD, ORAL
     Dates: start: 20091228, end: 20100216

REACTIONS (2)
  - HYPOTENSION [None]
  - MUSCULAR WEAKNESS [None]
